FAERS Safety Report 12217030 (Version 2)
Quarter: 2016Q2

REPORT INFORMATION
  Report Type: Spontaneous
  Country: DE (occurrence: DE)
  Receive Date: 20160329
  Receipt Date: 20160414
  Transmission Date: 20160815
  Serious: Yes (Disabling)
  Sender: FDA-Public Use
  Company Number: DE-B.I. PHARMACEUTICALS,INC./RIDGEFIELD-2016-BI-15599DE

PATIENT
  Age: 53 Year
  Sex: Male
  Weight: 150 kg

DRUGS (5)
  1. LISIGAMMA [Concomitant]
     Indication: HYPERTENSION
     Dosage: 10 MG
     Route: 048
  2. JARDIANCE [Suspect]
     Active Substance: EMPAGLIFLOZIN
     Indication: TYPE 2 DIABETES MELLITUS
     Dosage: 10 MG
     Route: 048
     Dates: start: 20160217, end: 20160218
  3. SIMVASTATIN AL [Concomitant]
     Indication: DYSLIPIDAEMIA
     Dosage: 40 MG
     Route: 048
  4. VELMETIA [Concomitant]
     Active Substance: METFORMIN\SITAGLIPTIN
     Indication: DIABETES MELLITUS
     Dosage: 2 ANZ
     Route: 048
  5. SIMVASTATIN AL [Concomitant]
     Dosage: 40 MG
     Route: 048
     Dates: start: 20141125

REACTIONS (2)
  - Dermatitis allergic [Recovered/Resolved]
  - Swelling [Recovered/Resolved]

NARRATIVE: CASE EVENT DATE: 20160217
